FAERS Safety Report 22343323 (Version 3)
Quarter: 2025Q2

REPORT INFORMATION
  Report Type: Spontaneous
  Country: FR (occurrence: FR)
  Receive Date: 20230519
  Receipt Date: 20250505
  Transmission Date: 20250716
  Serious: Yes (Hospitalization, Disabling, Other)
  Sender: AUROBINDO
  Company Number: FR-MLMSERVICE-20230503-4259327-1

PATIENT
  Age: 67 Year
  Sex: Female

DRUGS (3)
  1. PREDNISONE [Suspect]
     Active Substance: PREDNISONE
     Indication: Immunosuppressant drug therapy
     Route: 048
  2. MYCOPHENOLATE MOFETIL [Suspect]
     Active Substance: MYCOPHENOLATE MOFETIL
     Indication: Immunosuppressant drug therapy
     Route: 065
  3. TACROLIMUS [Suspect]
     Active Substance: TACROLIMUS
     Indication: Immunosuppressant drug therapy
     Route: 065

REACTIONS (5)
  - Central nervous system infection [Unknown]
  - Hepatitis G [Unknown]
  - Viral myelitis [Unknown]
  - Paraparesis [Unknown]
  - Drug ineffective [Unknown]

NARRATIVE: CASE EVENT DATE: 20191101
